FAERS Safety Report 7406764-7 (Version None)
Quarter: 2011Q2

REPORT INFORMATION
  Report Type: 
  Country: None (occurrence: None)
  Receive Date: 20110411
  Receipt Date: 20110330
  Transmission Date: 20111010
  Serious: Yes (Other)
  Sender: FDA-Public Use
  Company Number: PHHY2011NL28336

PATIENT
  Age: 43 Year
  Sex: Male
  Weight: 94 kg

DRUGS (5)
  1. BETA BLOCKING AGENTS [Concomitant]
  2. METFORMIN HCL [Suspect]
     Dosage: 3000 MG, QD
     Route: 048
     Dates: end: 20110101
  3. DIURETICS [Concomitant]
  4. TOLBUTAMIDE [Concomitant]
  5. METFORMIN HCL [Suspect]
     Indication: DIABETES MELLITUS
     Dosage: 1000 MG, QD
     Route: 048
     Dates: start: 20090101

REACTIONS (3)
  - FEELING ABNORMAL [None]
  - DYSPNOEA [None]
  - MYOCARDIAL INFARCTION [None]
